FAERS Safety Report 14272559 (Version 1)
Quarter: 2017Q4

REPORT INFORMATION
  Report Type: Spontaneous
  Country: US (occurrence: US)
  Receive Date: 20171211
  Receipt Date: 20171211
  Transmission Date: 20180321
  Serious: Yes (Other)
  Sender: FDA-Public Use
  Company Number: US-LEXICON PHARMACEUTICALS, INC-17-1606-01244

PATIENT
  Sex: Female

DRUGS (11)
  1. DULOXETINE. [Concomitant]
     Active Substance: DULOXETINE
  2. AMBIEN [Concomitant]
     Active Substance: ZOLPIDEM TARTRATE
  3. TELOTRISTAT ETHYL [Suspect]
     Active Substance: TELOTRISTAT ETHYL
     Indication: CARCINOID SYNDROME
     Route: 048
     Dates: start: 20170607
  4. SANDOSTATIN [Concomitant]
     Active Substance: OCTREOTIDE ACETATE
  5. FUROSEMIDE. [Concomitant]
     Active Substance: FUROSEMIDE
  6. FERROUS SULFATE. [Concomitant]
     Active Substance: FERROUS SULFATE
  7. METFORMIN [Concomitant]
     Active Substance: METFORMIN HYDROCHLORIDE
  8. LEVEMIR [Concomitant]
     Active Substance: INSULIN DETEMIR
  9. VICTOZA [Concomitant]
     Active Substance: LIRAGLUTIDE
  10. AMLODIPINE [Concomitant]
     Active Substance: AMLODIPINE BESYLATE
  11. METHADONE [Concomitant]
     Active Substance: METHADONE HYDROCHLORIDE

REACTIONS (2)
  - Renal failure [Unknown]
  - Meningioma [Unknown]

NARRATIVE: CASE EVENT DATE: 2017
